FAERS Safety Report 22635880 (Version 1)
Quarter: 2023Q2

REPORT INFORMATION
  Report Type: Spontaneous
  Country: None (occurrence: US)
  Receive Date: 20230623
  Receipt Date: 20230623
  Transmission Date: 20230722
  Serious: Yes (Other)
  Sender: FDA-Public Use
  Company Number: US-Central Admixture Pharmacy Services, Inc.-2143055

PATIENT

DRUGS (1)
  1. POTASSIUM PHOSPHATE, DIBASIC [Suspect]
     Active Substance: POTASSIUM PHOSPHATE, DIBASIC
     Route: 042
     Dates: start: 20230208, end: 20230208

REACTIONS (1)
  - Nosocomial infection [Recovered/Resolved]

NARRATIVE: CASE EVENT DATE: 20230208
